FAERS Safety Report 15828825 (Version 1)
Quarter: 2019Q1

REPORT INFORMATION
  Report Type: Spontaneous
  Country: US (occurrence: US)
  Receive Date: 20190115
  Receipt Date: 20190115
  Transmission Date: 20190417
  Serious: Yes (Other)
  Sender: FDA-Public Use
  Company Number: PHEH2019US002148

PATIENT
  Sex: Female

DRUGS (2)
  1. KLONOPIN [Suspect]
     Active Substance: CLONAZEPAM
     Dosage: 0.5 DF IN MORNING AND EVENING AND 1 DF AT NIGHT
     Route: 065
  2. KLONOPIN [Suspect]
     Active Substance: CLONAZEPAM
     Indication: ANXIETY
     Dosage: 0.5 DF, TID
     Route: 065
     Dates: start: 20180619

REACTIONS (4)
  - Migraine [Unknown]
  - Panic attack [Unknown]
  - Chest pain [Unknown]
  - Sedation [Unknown]
